FAERS Safety Report 19934306 (Version 5)
Quarter: 2022Q1

REPORT INFORMATION
  Report Type: Spontaneous
  Country: SI (occurrence: SI)
  Receive Date: 20211008
  Receipt Date: 20220216
  Transmission Date: 20220424
  Serious: Yes (Death, Hospitalization, Other)
  Sender: FDA-Public Use
  Company Number: SI-NOVARTISPH-NVSC2021SI207938

PATIENT
  Age: 73 Year
  Sex: Male
  Weight: 80 kg

DRUGS (10)
  1. RUXOLITINIB [Suspect]
     Active Substance: RUXOLITINIB
     Indication: Myelofibrosis
     Dosage: 2 X 20 MG
     Route: 065
     Dates: start: 20190423
  2. RUXOLITINIB [Suspect]
     Active Substance: RUXOLITINIB
     Dosage: 15 MG, BID
     Route: 065
  3. EXJADE [Suspect]
     Active Substance: DEFERASIROX
     Indication: Iron overload
     Dosage: 360 MG, BID
     Route: 065
  4. HYDROXYUREA [Concomitant]
     Active Substance: HYDROXYUREA
     Indication: Product used for unknown indication
     Dosage: UNK
     Route: 065
  5. DEXAMETHASONE [Concomitant]
     Active Substance: DEXAMETHASONE
     Indication: Myeloproliferative neoplasm
     Dosage: 20 MG, QW
     Route: 065
  6. DEXAMETHASONE [Concomitant]
     Active Substance: DEXAMETHASONE
     Dosage: 6 MG, QD (7 DAYS)
     Route: 065
  7. ERYTHROPOIETIN [Concomitant]
     Active Substance: ERYTHROPOIETIN
     Indication: Product used for unknown indication
     Dosage: UNK
     Route: 065
  8. AMOXICILLIN\CLAVULANIC ACID [Concomitant]
     Active Substance: AMOXICILLIN\CLAVULANIC ACID
     Indication: Myeloproliferative neoplasm
     Dosage: 1000 MG, BID
     Route: 065
  9. HEPARIN [Concomitant]
     Active Substance: HEPARIN SODIUM
     Indication: Product used for unknown indication
     Dosage: 5000 IE7DAY
     Route: 065
  10. ASPIRIN [Concomitant]
     Active Substance: ASPIRIN
     Indication: Product used for unknown indication
     Dosage: UNK
     Route: 065

REACTIONS (58)
  - Respiratory failure [Fatal]
  - Tachypnoea [Fatal]
  - Lung infiltration [Fatal]
  - Sepsis [Fatal]
  - COVID-19 pneumonia [Fatal]
  - Pyrexia [Fatal]
  - Oropharyngeal pain [Fatal]
  - Cough [Fatal]
  - Fatigue [Fatal]
  - Myalgia [Fatal]
  - Dyspnoea [Fatal]
  - Dysuria [Fatal]
  - Dacryocystitis [Unknown]
  - Thrombocytopenia [Unknown]
  - Pneumonia viral [Unknown]
  - Platelet count decreased [Unknown]
  - Haemoglobin decreased [Unknown]
  - Skin atrophy [Unknown]
  - Swelling face [Unknown]
  - Neutrophil count decreased [Unknown]
  - Polychromasia [Unknown]
  - Poikilocytosis [Unknown]
  - Spur cell anaemia [Unknown]
  - Red blood cell elliptocytes present [Unknown]
  - Hyperkeratosis [Unknown]
  - Anisocytosis [Unknown]
  - Hypochromasia [Unknown]
  - Asthenia [Unknown]
  - Anaemia [Unknown]
  - Pallor [Unknown]
  - Respiratory rate increased [Unknown]
  - Tachycardia [Unknown]
  - Red blood cell count decreased [Unknown]
  - Haematocrit decreased [Unknown]
  - Red cell distribution width increased [Unknown]
  - Erythroblast count increased [Unknown]
  - Blood glucose increased [Unknown]
  - Blood chloride increased [Unknown]
  - Blood calcium decreased [Unknown]
  - Blood urea increased [Unknown]
  - Blood creatinine increased [Unknown]
  - Glomerular filtration rate decreased [Unknown]
  - C-reactive protein increased [Unknown]
  - Alanine aminotransferase increased [Unknown]
  - Aspartate aminotransferase increased [Unknown]
  - Gamma-glutamyltransferase increased [Unknown]
  - Blood lactate dehydrogenase increased [Unknown]
  - Prothrombin time shortened [Unknown]
  - Activated partial thromboplastin time prolonged [Unknown]
  - Thrombin time prolonged [Unknown]
  - Fibrin D dimer increased [Unknown]
  - Troponin T increased [Unknown]
  - Blood sodium increased [Unknown]
  - Mean platelet volume increased [Unknown]
  - White blood cell count increased [Unknown]
  - Urinary tract infection [Unknown]
  - Splenomegaly [Unknown]
  - Oedema peripheral [Unknown]

NARRATIVE: CASE EVENT DATE: 20190211
